FAERS Safety Report 26108432 (Version 1)
Quarter: 2025Q4

REPORT INFORMATION
  Report Type: Spontaneous
  Country: EU (occurrence: EU)
  Receive Date: 20251201
  Receipt Date: 20251201
  Transmission Date: 20260118
  Serious: Yes (Life-Threatening)
  Sender: FRESENIUS KABI
  Company Number: None

PATIENT
  Age: 33 Year
  Sex: Female
  Weight: 67.5 kg

DRUGS (2)
  1. ROPIVACAINE HYDROCHLORIDE [Suspect]
     Active Substance: ROPIVACAINE HYDROCHLORIDE
     Indication: Local anaesthesia
     Dosage: CF COMMENT
     Route: 058
     Dates: start: 20250924, end: 20250924
  2. MEPIVACAINE HYDROCHLORIDE [Suspect]
     Active Substance: MEPIVACAINE HYDROCHLORIDE
     Indication: Local anaesthesia
     Dosage: CF COMMENTS
     Route: 058
     Dates: start: 20250924, end: 20250924

REACTIONS (1)
  - Status epilepticus [Recovered/Resolved]

NARRATIVE: CASE EVENT DATE: 20250924
